FAERS Safety Report 4549855-0 (Version None)
Quarter: 2004Q4

REPORT INFORMATION
  Report Type: 
  Country: None (occurrence: None)
  Receive Date: 20041227
  Receipt Date: 20040909
  Transmission Date: 20050328
  Serious: No
  Sender: FDA-Public Use
  Company Number: 04P-163-0272749-00

PATIENT
  Age: 54 Year
  Sex: Female
  Weight: 70.3075 kg

DRUGS (13)
  1. HUMIRA [Suspect]
     Indication: RHEUMATOID ARTHRITIS
     Dosage: SEE IMAGE
     Route: 058
     Dates: start: 20031001, end: 20031101
  2. HUMIRA [Suspect]
     Indication: RHEUMATOID ARTHRITIS
     Dosage: SEE IMAGE
     Route: 058
     Dates: start: 20031101, end: 20040801
  3. PREDNISONE [Concomitant]
  4. LANSOPRAZOLE [Concomitant]
  5. NAPROSYN [Concomitant]
  6. ALENDRONATE SODIUM [Concomitant]
  7. METHOTREXATE SODIUM [Concomitant]
  8. FOLIC ACID [Concomitant]
  9. FISH OIL [Concomitant]
  10. CALCIUM GLUCONATE [Concomitant]
  11. ASCORBIC ACID [Concomitant]
  12. MULTI-VITAMINS [Concomitant]
  13. PYRIDOXINE HYDROCHLORIDE [Concomitant]

REACTIONS (2)
  - HERPES ZOSTER [None]
  - SYSTEMIC LUPUS ERYTHEMATOSUS [None]
